FAERS Safety Report 9355017 (Version 1)
Quarter: 2013Q2

REPORT INFORMATION
  Report Type: Spontaneous
  Country: US (occurrence: None)
  Receive Date: 20130618
  Receipt Date: 20130618
  Transmission Date: 20140414
  Serious: Yes (Other)
  Sender: FDA-Public Use
  Company Number: None

PATIENT
  Age: 37 Year
  Sex: Female
  Weight: 88.45 kg

DRUGS (4)
  1. CYMBALTA [Suspect]
     Indication: DEPRESSION
     Dosage: 60MG AND 30MG?1 PILL?AT BEDTIME?MOUTH
     Route: 048
  2. PRILODEC [Concomitant]
  3. PREVALITE POWDER [Concomitant]
  4. IBUPROFEN [Concomitant]

REACTIONS (3)
  - Neck pain [None]
  - Neuritis [None]
  - Drug withdrawal syndrome [None]
